FAERS Safety Report 6664721-2 (Version None)
Quarter: 2010Q1

REPORT INFORMATION
  Report Type: 
  Country: None (occurrence: None)
  Receive Date: 20100330
  Receipt Date: 20091221
  Transmission Date: 20100710
  Serious: Yes (Hospitalization)
  Sender: FDA-Public Use
  Company Number: 6056850

PATIENT
  Age: 30 Year
  Sex: Female

DRUGS (5)
  1. LEVOTHYROXINE SODIUM [Suspect]
     Indication: HYPOTHYROIDISM
     Dosage: 1 DOSAGE FORMS (1 DOSAGE FORMS, 1 IN 1 D)
     Route: 048
     Dates: start: 20000101
  2. PANDEMRIX   (SUSPENSION FOR INJECTION) (A/CALIFORNIA/7/2009) [Suspect]
     Indication: INFLUENZA IMMUNISATION
     Dosage: (1 DOSAGE FORMS, ONLY ONE DOSAGE)
     Route: 030
     Dates: start: 20091125, end: 20091125
  3. LOVENOX [Concomitant]
  4. DIGOXIN [Concomitant]
  5. CORDARONE [Concomitant]

REACTIONS (7)
  - ATRIAL FIBRILLATION [None]
  - DIZZINESS [None]
  - DYSPNOEA EXERTIONAL [None]
  - ELECTROCARDIOGRAM T WAVE ABNORMAL [None]
  - HYPOAESTHESIA [None]
  - TACHYCARDIA [None]
  - VOMITING [None]
